FAERS Safety Report 4300524-1 (Version None)
Quarter: 2004Q1

REPORT INFORMATION
  Report Type: 
  Country: None (occurrence: None)
  Receive Date: 20040218
  Receipt Date: 20031125
  Transmission Date: 20041129
  Serious: No
  Sender: FDA-Public Use
  Company Number: 04P-163-0250059-00

PATIENT
  Age: 36 Year
  Sex: Male

DRUGS (5)
  1. NORVIR [Suspect]
     Indication: HIV INFECTION
     Dosage: PER ORAL
     Route: 048
  2. KALETRA [Suspect]
     Indication: HIV INFECTION
     Dosage: PER ORAL
     Route: 048
  3. TENOFOVIR [Suspect]
     Indication: HIV INFECTION
     Dosage: PER ORAL
     Route: 048
  4. LAMIVUDINE [Suspect]
     Indication: HIV INFECTION
     Dosage: PER ORAL
     Route: 048
  5. ATAZANAVIR SULFATE [Suspect]
     Indication: HIV INFECTION
     Dosage: PER ORAL
     Route: 048

REACTIONS (5)
  - HYPERBILIRUBINAEMIA [None]
  - MENINGITIS CRYPTOCOCCAL [None]
  - NAUSEA [None]
  - VOMITING [None]
  - WEIGHT DECREASED [None]
